FAERS Safety Report 4280898-0 (Version None)
Quarter: 2004Q1

REPORT INFORMATION
  Report Type: 
  Country: None (occurrence: None)
  Receive Date: 20040129
  Receipt Date: 20031014
  Transmission Date: 20041129
  Serious: Yes (Hospitalization)
  Sender: FDA-Public Use
  Company Number: JP-GLAXOSMITHKLINE-B0311815A

PATIENT
  Age: 19 Year
  Sex: Female
  Weight: 37 kg

DRUGS (3)
  1. PAXIL [Suspect]
     Indication: ILL-DEFINED DISORDER
     Route: 048
     Dates: start: 20021001, end: 20021218
  2. LEVOMEPROMAZINE MALEATE [Suspect]
     Dosage: 85MG PER DAY
     Route: 048
     Dates: start: 20021218, end: 20021218
  3. FLUNITRAZEPAM [Suspect]
     Dosage: 14MG PER DAY
     Route: 048
     Dates: start: 20021218, end: 20021218

REACTIONS (7)
  - ATRIAL FIBRILLATION [None]
  - BRADYCARDIA [None]
  - COMA [None]
  - DYSPNOEA [None]
  - HYPOTENSION [None]
  - HYPOTHERMIA [None]
  - OVERDOSE [None]
